FAERS Safety Report 9358689 (Version 1)
Quarter: 2013Q2

REPORT INFORMATION
  Report Type: Spontaneous
  Country: FR (occurrence: FR)
  Receive Date: 20130620
  Receipt Date: 20130620
  Transmission Date: 20140414
  Serious: Yes (Hospitalization)
  Sender: FDA-Public Use
  Company Number: FR-GLAXOSMITHKLINE-B0899396A

PATIENT
  Age: 80 Year
  Sex: Female

DRUGS (5)
  1. ARIXTRA [Suspect]
     Indication: THROMBOPHLEBITIS
     Dosage: 7.5MG PER DAY
     Route: 058
     Dates: start: 20130224
  2. PARACETAMOL [Concomitant]
     Route: 065
  3. TRINITRINE [Concomitant]
     Dosage: 5MG UNKNOWN
     Route: 065
  4. FORLAX [Concomitant]
     Dosage: 10G UNKNOWN
     Route: 065
  5. ROCEPHINE [Concomitant]
     Dosage: 1G PER DAY
     Route: 058

REACTIONS (6)
  - Haematoma [Recovering/Resolving]
  - Femur fracture [Unknown]
  - Renal failure acute [Unknown]
  - Rhabdomyolysis [Unknown]
  - Anaemia [Unknown]
  - Incorrect drug administration duration [Unknown]
